FAERS Safety Report 8385333-9 (Version None)
Quarter: 2012Q2

REPORT INFORMATION
  Report Type: 
  Country: None (occurrence: None)
  Receive Date: 20120525
  Receipt Date: 20120516
  Transmission Date: 20120825
  Serious: No
  Sender: FDA-Public Use
  Company Number: US-BIOGENIDEC-2012BI017446

PATIENT
  Age: 66 Year
  Sex: Female

DRUGS (3)
  1. TYSABRI [Suspect]
     Indication: MULTIPLE SCLEROSIS
     Route: 042
     Dates: start: 20100422
  2. NASAL MEDICATION [Concomitant]
     Indication: ASTHMA
  3. NEBULIZER MEDICATION (NOS) [Concomitant]
     Indication: ASTHMA

REACTIONS (1)
  - LUNG INFECTION [None]
